FAERS Safety Report 11552427 (Version 3)
Quarter: 2015Q4

REPORT INFORMATION
  Report Type: Spontaneous
  Country: US (occurrence: US)
  Receive Date: 20150925
  Receipt Date: 20151026
  Transmission Date: 20160304
  Serious: Yes (Other)
  Sender: FDA-Public Use
  Company Number: US-PFIZER INC-2015317881

PATIENT
  Age: 79 Year
  Sex: Female
  Weight: 73.16 kg

DRUGS (19)
  1. ORENCIA [Concomitant]
     Active Substance: ABATACEPT
     Dosage: 750 MG, CYCLIC (INFUSE (750MG) BY INTRAVENOUS ROUTE EVERY 28 DAYS)
     Route: 042
  2. KEFLEX [Concomitant]
     Active Substance: CEPHALEXIN
     Dosage: 250 MG, 3X/DAY (TAKE 1 CAPSULE BY ORAL ROUTE EVERY 8 HOURS)
     Route: 048
  3. ACETAMINOPHEN W/HYDROCODONE [Concomitant]
     Active Substance: ACETAMINOPHEN\HYDROCODONE
     Indication: PAIN
     Dosage: UNK, 4X/DAY AS NEEDED (HYDROCODONE 10MG-ACETAMINOPHEN 325MG)
     Route: 048
  4. AMLODIPINE [Concomitant]
     Active Substance: AMLODIPINE BESYLATE
     Dosage: 2.5 MG, DAILY (TAKE 1 TABLET (2.5MG) BY ORAL ROUTE EVERY DAY)
     Route: 048
  5. NITROGLYCERIN. [Concomitant]
     Active Substance: NITROGLYCERIN
     Dosage: UNK, DAILY (APPLY 1 PATCH DAILY TO SKIN AND FOR 10-12 HOURS AND REMOVE AT NIGHT DAILY)
  6. OMEPRAZOLE. [Concomitant]
     Active Substance: OMEPRAZOLE
     Dosage: 40 MG, DAILY(TAKE 1 CAPSULE BY ORAL ROUTE EVERY DAY BEFORE A MEAL.)
     Route: 048
  7. VALTREX [Concomitant]
     Active Substance: VALACYCLOVIR HYDROCHLORIDE
     Indication: HERPES VIRUS INFECTION
     Dosage: 500 MG, 2X/DAY (TAKE 2 TABS BY MOUTH TWICE A DAY FOR 3 DAYS AS NEEDED)
     Route: 048
  8. NITROSTAT [Concomitant]
     Active Substance: NITROGLYCERIN
     Dosage: 0.4 MG, UNK (PLACE 1 TABLET UNDER TONGUE ONCE EVERY 5 MIN. AS NEEDED)
     Route: 060
  9. EMLA [Concomitant]
     Active Substance: LIDOCAINE\PRILOCAINE
     Dosage: UNK (2.5%-2.5% TOPICAL CREAM) EVERY 5 HOURS
     Route: 061
  10. TRIAMCINOLONE ACETONIDE. [Concomitant]
     Active Substance: TRIAMCINOLONE ACETONIDE
     Indication: VAGINAL DISORDER
     Dosage: (TOPICAL ROUTE 2 TIMES EVERY DAY), 2X/DAY
     Route: 061
  11. ESTRING [Suspect]
     Active Substance: ESTRADIOL
     Indication: ATROPHIC VULVOVAGINITIS
     Dosage: 2 MG, EVERY 3 MONTHS
     Route: 067
     Dates: start: 20150727, end: 20150810
  12. ALPRAZOLAM. [Concomitant]
     Active Substance: ALPRAZOLAM
     Indication: ANXIETY
     Dosage: 0.5 MG, 3X/DAY (: TAKE 1 TABLET BY ORAL ROUTE 3 TIMES EVERY DAY AS NEEDED FOR ANXIETY)
     Route: 048
  13. OXYBUTYNIN CHLORIDE. [Concomitant]
     Active Substance: OXYBUTYNIN CHLORIDE
     Indication: MICTURITION DISORDER
     Dosage: 5 MG, 1X/DAY
     Route: 048
  14. MORPHINE SULFATE EXTENDED-RELEASE [Concomitant]
     Active Substance: MORPHINE SULFATE
     Dosage: 60 MG, 2X/DAY (TAKE 1 TABLET BY ORAL ROUTE EVERY 12 HOURS)
     Route: 048
  15. CYMBALTA [Concomitant]
     Active Substance: DULOXETINE HYDROCHLORIDE
     Dosage: 30 MG, UNK
  16. POLYETHYLENE GLYCOL 3350. [Concomitant]
     Active Substance: POLYETHYLENE GLYCOL 3350
     Dosage: UNK, DAILY (TAKE (17G) BY ORAL ROUTE EVERY DAY MIXED WITH 8 OZ. WATER, JUICE, SODA, COFFEE OR TEA)
     Route: 048
  17. VITAMIN D3 [Concomitant]
     Active Substance: CHOLECALCIFEROL
     Dosage: UNK (4000 UNIT CAPSULE)
  18. RESTASIS [Concomitant]
     Active Substance: CYCLOSPORINE
     Dosage: UNK, 2X/DAY (INSTILL 1 DROP BY OPHTHALMIC ROUTE EVERY 12 HOURS INTO AFFECTED EYE(S))
     Route: 047
  19. FLUCONAZOLE. [Concomitant]
     Active Substance: FLUCONAZOLE
     Dosage: 150 MG, ^ONCE^
     Route: 048

REACTIONS (1)
  - Vaginal haemorrhage [Unknown]
